FAERS Safety Report 10268388 (Version 1)
Quarter: 2014Q2

REPORT INFORMATION
  Report Type: Spontaneous
  Country: DE (occurrence: IT)
  Receive Date: 20140630
  Receipt Date: 20140630
  Transmission Date: 20141212
  Serious: Yes (Other)
  Sender: FDA-Public Use
  Company Number: IT-FRI-1000068554

PATIENT
  Age: 74 Year
  Sex: Male

DRUGS (1)
  1. MEMANTINE [Suspect]
     Indication: COGNITIVE DISORDER
     Dosage: 1 DF
     Route: 048
     Dates: start: 20140520, end: 20140524

REACTIONS (4)
  - Head injury [Recovering/Resolving]
  - Loss of consciousness [Recovering/Resolving]
  - Syncope [Recovering/Resolving]
  - Off label use [Recovered/Resolved]
